FAERS Safety Report 5693176-X (Version None)
Quarter: 2008Q2

REPORT INFORMATION
  Report Type: 
  Country: None (occurrence: None)
  Receive Date: 20080403
  Receipt Date: 20080328
  Transmission Date: 20081010
  Serious: Yes (Hospitalization)
  Sender: FDA-Public Use
  Company Number: JP-SP-2008-00901

PATIENT
  Age: 85 Year
  Sex: Male

DRUGS (5)
  1. IMMUCYST [Suspect]
     Indication: BLADDER CANCER
     Route: 043
     Dates: start: 20070511, end: 20070615
  2. IMMUCYST [Suspect]
     Route: 043
     Dates: start: 20070511, end: 20070615
  3. IMMUCYST [Suspect]
     Route: 043
     Dates: start: 20070511, end: 20070615
  4. IMMUCYST [Suspect]
     Route: 043
     Dates: start: 20070511, end: 20070615
  5. IMMUCYST [Suspect]
     Route: 043
     Dates: start: 20070511, end: 20070615

REACTIONS (8)
  - ALANINE AMINOTRANSFERASE INCREASED [None]
  - ASPARTATE AMINOTRANSFERASE INCREASED [None]
  - BLOOD ALKALINE PHOSPHATASE INCREASED [None]
  - BLOOD UREA INCREASED [None]
  - GAMMA-GLUTAMYLTRANSFERASE INCREASED [None]
  - PROSTATITIS [None]
  - PROTEIN TOTAL DECREASED [None]
  - PYREXIA [None]
